FAERS Safety Report 23660510 (Version 2)
Quarter: 2024Q1

REPORT INFORMATION
  Report Type: Report from Study
  Country: GR (occurrence: GR)
  Receive Date: 20240322
  Receipt Date: 20240328
  Transmission Date: 20240410
  Serious: Yes (Hospitalization, Other)
  Sender: FDA-Public Use
  Company Number: GR-ABBVIE-5687716

PATIENT
  Age: 81 Year
  Sex: Male

DRUGS (2)
  1. CARBIDOPA\LEVODOPA [Suspect]
     Active Substance: CARBIDOPA\LEVODOPA
     Indication: Parkinson^s disease
     Dosage: MORNING DOSE: 15.0ML; CONTINUOUS RATE: 4.7ML/H; EXTRA DOSE: 2.2ML
     Route: 050
     Dates: start: 20181204
  2. CARBIDOPA\LEVODOPA [Suspect]
     Active Substance: CARBIDOPA\LEVODOPA
     Dosage: MORNING DOSE: 15.0ML; CONTINUOUS RATE: 4.9ML/H; EXTRA DOSE: 2.2ML
     Route: 050

REACTIONS (8)
  - Dehydration [Not Recovered/Not Resolved]
  - Diarrhoea [Not Recovered/Not Resolved]
  - Sepsis [Not Recovered/Not Resolved]
  - Colitis [Not Recovered/Not Resolved]
  - Posture abnormal [Not Recovered/Not Resolved]
  - Pulmonary oedema [Not Recovered/Not Resolved]
  - Incorrect route of product administration [Unknown]
  - Device occlusion [Not Recovered/Not Resolved]

NARRATIVE: CASE EVENT DATE: 20240301
